APPROVED DRUG PRODUCT: IFOSFAMIDE/MESNA KIT
Active Ingredient: IFOSFAMIDE; MESNA
Strength: 3GM/60ML;1GM/10ML (50MG/ML;100MG/ML)
Dosage Form/Route: INJECTABLE;INTRAVENOUS
Application: A075874 | Product #002
Applicant: TEVA PHARMACEUTICALS USA
Approved: Feb 26, 2002 | RLD: No | RS: No | Type: DISCN